FAERS Safety Report 4506242-9 (Version None)
Quarter: 2004Q4

REPORT INFORMATION
  Report Type: 
  Country: None (occurrence: None)
  Receive Date: 20041025
  Receipt Date: 20040622
  Transmission Date: 20050328
  Serious: Yes (Hospitalization)
  Sender: FDA-Public Use
  Company Number: US-JNJFOC-20040606258

PATIENT
  Age: 31 Year
  Sex: Female

DRUGS (2)
  1. REMICADE [Suspect]
     Indication: CROHN'S DISEASE
     Dosage: 300 MG
     Dates: start: 20030812, end: 20030812
  2. REMICADE [Suspect]
     Indication: CROHN'S DISEASE
     Dosage: 300 MG
     Dates: start: 20010101

REACTIONS (1)
  - DYSPNOEA [None]
